FAERS Safety Report 18180893 (Version 1)
Quarter: 2020Q3

REPORT INFORMATION
  Report Type: Spontaneous
  Country: US (occurrence: US)
  Receive Date: 20200821
  Receipt Date: 20200821
  Transmission Date: 20201103
  Serious: No
  Sender: FDA-Public Use
  Company Number: US-009507513-2008USA010259

PATIENT
  Sex: Female

DRUGS (1)
  1. NEXPLANON [Suspect]
     Active Substance: ETONOGESTREL
     Dosage: 1 ROD
     Route: 059

REACTIONS (12)
  - Infertility female [Unknown]
  - Menstruation delayed [Unknown]
  - Pain in extremity [Unknown]
  - Weight increased [Unknown]
  - Emotional disorder [Unknown]
  - Limb injury [Unknown]
  - Depression [Unknown]
  - Asthenia [Unknown]
  - Device breakage [Recovered/Resolved]
  - Menorrhagia [Unknown]
  - Scar [Unknown]
  - Complication of device removal [Recovered/Resolved]
